FAERS Safety Report 17044424 (Version 1)
Quarter: 2019Q4

REPORT INFORMATION
  Report Type: Spontaneous
  Country: RS (occurrence: RS)
  Receive Date: 20191118
  Receipt Date: 20191118
  Transmission Date: 20200122
  Serious: Yes (Other)
  Sender: FDA-Public Use
  Company Number: RS-BAYER-2019-203314

PATIENT
  Age: 41 Year
  Sex: Female

DRUGS (6)
  1. MIRENA [Suspect]
     Active Substance: LEVONORGESTREL
     Indication: MENORRHAGIA
  2. MIRENA [Suspect]
     Active Substance: LEVONORGESTREL
     Indication: MENORRHAGIA
     Dosage: 20 MCG/24HR, CONT
     Route: 015
     Dates: start: 20190916, end: 20191101
  3. ALLERGOSAN [Concomitant]
  4. RUPAFIN [Concomitant]
     Active Substance: RUPATADINE FUMARATE
  5. SINODERM [Concomitant]
  6. ASCORBIC ACID. [Concomitant]
     Active Substance: ASCORBIC ACID

REACTIONS (4)
  - Rash maculo-papular [None]
  - Dermatitis atopic [None]
  - Urticaria [None]
  - Dermatitis exfoliative generalised [None]

NARRATIVE: CASE EVENT DATE: 201910
